FAERS Safety Report 11168514 (Version 1)
Quarter: 2015Q2

REPORT INFORMATION
  Report Type: Spontaneous
  Country: US (occurrence: US)
  Receive Date: 20150605
  Receipt Date: 20150605
  Transmission Date: 20150821
  Serious: Yes (Other)
  Sender: FDA-Public Use
  Company Number: US-PROCTER_AND_GAMBLE-CIO15033289

PATIENT
  Age: 68 Year
  Sex: Female
  Weight: 56.69 kg

DRUGS (5)
  1. FISH OIL [Suspect]
     Active Substance: FISH OIL
     Dosage: 2 PER DAY FOR ONE DAY
     Route: 048
     Dates: start: 201505, end: 201505
  2. FISH OIL [Suspect]
     Active Substance: FISH OIL
     Dosage: 1 PER DAY ORALLY FOR 1 WEEK
     Route: 048
     Dates: start: 201505, end: 201505
  3. VICKS VAPORUB [Suspect]
     Active Substance: CAMPHOR (SYNTHETIC)\EUCALYPTUS OIL\MENTHOL
     Indication: NASAL CONGESTION
     Dosage: APPLIED INSIDE BOTH NOSTRILS AT BEDTIME
     Route: 061
  4. MULTIVITAMIN                       /00097801/ [Concomitant]
     Active Substance: VITAMINS
  5. ADVIL (MEFENAMIC ACID) [Concomitant]
     Active Substance: MEFENAMIC ACID

REACTIONS (9)
  - Aphagia [Recovering/Resolving]
  - Speech disorder [Recovering/Resolving]
  - Feeding disorder [None]
  - Product use issue [Unknown]
  - Exposure via inhalation [Unknown]
  - Dyspnoea [Recovering/Resolving]
  - Pharyngeal oedema [Recovering/Resolving]
  - Swelling face [Recovering/Resolving]
  - Oral disorder [Recovering/Resolving]

NARRATIVE: CASE EVENT DATE: 201505
